FAERS Safety Report 5179120-2 (Version None)
Quarter: 2006Q4

REPORT INFORMATION
  Report Type: 
  Country: None (occurrence: None)
  Receive Date: 20061219
  Receipt Date: 20060928
  Transmission Date: 20070319
  Serious: Yes (Other)
  Sender: FDA-Public Use
  Company Number: PHHO2006GR16263

PATIENT
  Age: 38 Year
  Sex: Female
  Weight: 70 kg

DRUGS (3)
  1. EXJADE [Suspect]
     Indication: BLOOD IRON INCREASED
     Dosage: 1500 MG, QD
     Route: 048
     Dates: start: 20060622, end: 20060928
  2. COMBIPATCH [Suspect]
     Indication: HYPOGONADISM
     Route: 023
     Dates: start: 20060201, end: 20060921
  3. SALOSPIR [Concomitant]
     Indication: PLATELET COUNT INCREASED
     Dosage: 100 MG, QD
     Route: 048
     Dates: start: 19900101

REACTIONS (2)
  - PROTEINURIA [None]
  - RENAL IMPAIRMENT [None]
